FAERS Safety Report 21296875 (Version 1)
Quarter: 2022Q3

REPORT INFORMATION
  Report Type: Spontaneous
  Country: US (occurrence: US)
  Receive Date: 20220906
  Receipt Date: 20220906
  Transmission Date: 20221027
  Serious: No
  Sender: FDA-Public Use
  Company Number: US-BAYER-2022A113523

PATIENT
  Age: 56 Year
  Sex: Female

DRUGS (3)
  1. MIRALAX [Suspect]
     Active Substance: POLYETHYLENE GLYCOL 3350
     Indication: Gastrointestinal disorder
     Dosage: 1 CAPFUL A DAY
     Route: 048
  2. MIRALAX [Suspect]
     Active Substance: POLYETHYLENE GLYCOL 3350
     Indication: Constipation
  3. CLOZAPINE [Suspect]
     Active Substance: CLOZAPINE

REACTIONS (1)
  - Drug ineffective [Unknown]
